FAERS Safety Report 17679174 (Version 1)
Quarter: 2020Q2

REPORT INFORMATION
  Report Type: Report from Study
  Country: CN (occurrence: CN)
  Receive Date: 20200417
  Receipt Date: 20200417
  Transmission Date: 20200714
  Serious: Yes (Other)
  Sender: FDA-Public Use
  Company Number: CN-ROCHE-2582247

PATIENT
  Sex: Female

DRUGS (5)
  1. DEXAMETHASONE. [Concomitant]
     Active Substance: DEXAMETHASONE
     Route: 065
  2. DIPHENHYDRAMINE. [Concomitant]
     Active Substance: DIPHENHYDRAMINE
     Route: 030
  3. PACLITAXEL. [Suspect]
     Active Substance: PACLITAXEL
     Indication: OVARIAN CANCER RECURRENT
     Dosage: TREATMENT CONTINUED FOR 2 WEEKS.
     Route: 041
  4. BEVACIZUMAB. [Suspect]
     Active Substance: BEVACIZUMAB
     Indication: OVARIAN CANCER RECURRENT
     Dosage: DISSOLVED 7.5 MG / KG OF THIS PRODUCT IN 250 ML OF PHYSIOLOGICAL SALINE, INTRAVENOUS INSTILLATION, T
     Route: 041
  5. CIMETIDINE [Concomitant]
     Active Substance: CIMETIDINE
     Route: 040

REACTIONS (2)
  - Melaena [Unknown]
  - Bone marrow failure [Unknown]
